FAERS Safety Report 23004293 (Version 4)
Quarter: 2023Q4

REPORT INFORMATION
  Report Type: Report from Study
  Country: KR (occurrence: KR)
  Receive Date: 20230928
  Receipt Date: 20231220
  Transmission Date: 20240109
  Serious: Yes (Hospitalization)
  Sender: FDA-Public Use
  Company Number: KR-ANTENGENE-20230901997

PATIENT
  Age: 66 Year
  Sex: Male
  Weight: 73.1 kg

DRUGS (10)
  1. SELINEXOR [Suspect]
     Active Substance: SELINEXOR
     Indication: Plasma cell myeloma
     Dosage: 80 MG, 2X/WEEK
     Route: 048
     Dates: start: 20230905, end: 20230912
  2. SELINEXOR [Suspect]
     Active Substance: SELINEXOR
     Dosage: 100 MG, WEEKLY
     Route: 048
     Dates: start: 20230917, end: 20231001
  3. SELINEXOR [Suspect]
     Active Substance: SELINEXOR
     Dosage: 100 MG, WEEKLY
     Route: 048
     Dates: start: 20231013, end: 20231027
  4. SELINEXOR [Suspect]
     Active Substance: SELINEXOR
     Dosage: 80 MG, WEEKLY
     Route: 048
     Dates: start: 20231113
  5. CAVIDA [Concomitant]
     Indication: Hypocalcaemia
     Dosage: 1250 MG, QD
     Route: 048
     Dates: start: 20230904
  6. CETAMADOL [Concomitant]
     Indication: Bone pain
     Dosage: UNK, TID
     Dates: start: 20230904
  7. LYRICA [Concomitant]
     Active Substance: PREGABALIN
     Indication: Neuropathy peripheral
     Dosage: 75 MG, BID
     Route: 048
     Dates: start: 20230904
  8. DULACKHAN [Concomitant]
     Indication: Constipation
     Dosage: 15 ML, TID
     Route: 048
     Dates: start: 20230904
  9. NICORANDIL [Concomitant]
     Active Substance: NICORANDIL
     Indication: Angina pectoris
     Dosage: 5 MG, BID
     Route: 048
     Dates: start: 20230904
  10. YUHAN DEXAMETHASONE [Concomitant]
     Indication: Plasma cell myeloma
     Dosage: 20 MG, BIW
     Route: 048
     Dates: start: 20230905

REACTIONS (7)
  - Alanine aminotransferase increased [Recovered/Resolved]
  - Aspartate aminotransferase increased [Recovered/Resolved]
  - Cytopenia [Not Recovered/Not Resolved]
  - Vomiting [Recovered/Resolved]
  - Neutrophil count decreased [Recovered/Resolved]
  - Diarrhoea [Recovered/Resolved]
  - Hypokalaemia [Recovered/Resolved]

NARRATIVE: CASE EVENT DATE: 20230907
